FAERS Safety Report 25638112 (Version 2)
Quarter: 2025Q3

REPORT INFORMATION
  Report Type: Spontaneous
  Country: US (occurrence: US)
  Receive Date: 20250804
  Receipt Date: 20250826
  Transmission Date: 20251020
  Serious: Yes (Other)
  Sender: EISAI
  Company Number: US-Eisai-EC-2025-193446

PATIENT
  Age: 75 Year
  Sex: Male
  Weight: 70 kg

DRUGS (3)
  1. LEQEMBI [Suspect]
     Active Substance: LECANEMAB-IRMB
     Indication: Dementia Alzheimer^s type
     Route: 042
     Dates: start: 20250430, end: 20250528
  2. LEQEMBI [Suspect]
     Active Substance: LECANEMAB-IRMB
     Route: 042
     Dates: start: 20250611, end: 20250611
  3. ASPIRIN [Concomitant]
     Active Substance: ASPIRIN
     Indication: Product used for unknown indication

REACTIONS (2)
  - Amyloid related imaging abnormality-microhaemorrhages and haemosiderin deposits [Recovering/Resolving]
  - Superficial siderosis of central nervous system [Recovering/Resolving]

NARRATIVE: CASE EVENT DATE: 20250612
